FAERS Safety Report 9337707 (Version 4)
Quarter: 2013Q3

REPORT INFORMATION
  Report Type: Report from Study
  Country: DE (occurrence: DE)
  Receive Date: 20130607
  Receipt Date: 20130828
  Transmission Date: 20140515
  Serious: Yes (Life-Threatening, Hospitalization)
  Sender: FDA-Public Use
  Company Number: DE-MERCK-1305DEU010684

PATIENT
  Age: 16 Year
  Sex: Male
  Weight: 41.8 kg

DRUGS (1)
  1. VORINOSTAT [Suspect]
     Dosage: (1000MG) 330 MG/M2, QD
     Route: 048
     Dates: start: 20130418, end: 20130816

REACTIONS (4)
  - Thrombocytopenia [Recovering/Resolving]
  - Bradycardia [Recovering/Resolving]
  - Wound abscess [Recovered/Resolved]
  - Bundle branch block right [Not Recovered/Not Resolved]
